FAERS Safety Report 10230594 (Version 1)
Quarter: 2014Q2

REPORT INFORMATION
  Report Type: Spontaneous
  Country: US (occurrence: US)
  Receive Date: 20140611
  Receipt Date: 20140611
  Transmission Date: 20141212
  Serious: Yes (Hospitalization)
  Sender: FDA-Public Use
  Company Number: US-INCYTE CORPORATION-2014IN001362

PATIENT
  Sex: Male
  Weight: 85.71 kg

DRUGS (3)
  1. JAKAFI [Suspect]
     Indication: MYELOFIBROSIS
     Dosage: 20 MG, BID
     Route: 048
  2. ALLOPURINOL [Concomitant]
  3. MULTIVITAMIN                       /00097801/ [Concomitant]

REACTIONS (2)
  - Full blood count decreased [Unknown]
  - Weight fluctuation [Unknown]
